FAERS Safety Report 9292758 (Version 1)
Quarter: 2013Q1

REPORT INFORMATION
  Report Type: Spontaneous
  Country: US (occurrence: None)
  Receive Date: 20121212
  Receipt Date: 20121212
  Transmission Date: 20140127
  Serious: No
  Sender: FDA-Public Use
  Company Number: 1210USA009034

PATIENT
  Age: 62 Year
  Sex: Male

DRUGS (3)
  1. VICTRELIS [Suspect]
     Indication: HEPATITIS C
     Route: 048
     Dates: start: 201208
  2. RIBAVIRIN [Suspect]
     Dates: start: 20120706
  3. PEGINTERFERON ALFA-2B [Suspect]
     Dates: start: 20120706

REACTIONS (9)
  - Hyperventilation [None]
  - Pain [None]
  - Headache [None]
  - Eructation [None]
  - Flatulence [None]
  - Dyspnoea [None]
  - Dizziness [None]
  - Fatigue [None]
  - Diarrhoea [None]
